FAERS Safety Report 17254968 (Version 2)
Quarter: 2020Q1

REPORT INFORMATION
  Report Type: Report from Study
  Country: None (occurrence: ES)
  Receive Date: 20200109
  Receipt Date: 20200127
  Transmission Date: 20200409
  Serious: Yes (Hospitalization)
  Sender: FDA-Public Use
  Company Number: ES-ABBVIE-20K-144-3225605-00

PATIENT
  Age: 74 Year
  Sex: Male

DRUGS (4)
  1. SINEMET [Concomitant]
     Active Substance: CARBIDOPA\LEVODOPA
     Indication: PARKINSON^S DISEASE
     Route: 048
     Dates: start: 20191209, end: 20200107
  2. DUODOPA [Suspect]
     Active Substance: CARBIDOPA\LEVODOPA
     Dosage: DOSE LOWERED BY HALF OF MORNING DOSE, CONTINUOUS DOSE, BLOCK EXTRA DOSE
     Route: 050
     Dates: start: 20200107, end: 20200116
  3. DUODOPA [Suspect]
     Active Substance: CARBIDOPA\LEVODOPA
     Indication: PARKINSON^S DISEASE
     Route: 050
     Dates: start: 20160511, end: 20191209
  4. DUODOPA [Suspect]
     Active Substance: CARBIDOPA\LEVODOPA
     Dosage: CONTINUOUS DOSE INCREASED BY 0.2ML
     Route: 050
     Dates: start: 20200116

REACTIONS (4)
  - Toxicity to various agents [Recovered/Resolved]
  - Epilepsy [Recovered/Resolved]
  - Freezing phenomenon [Recovered/Resolved]
  - Dyskinesia [Recovered/Resolved]

NARRATIVE: CASE EVENT DATE: 20191205
